FAERS Safety Report 16710561 (Version 1)
Quarter: 2019Q4

REPORT INFORMATION
  Report Type: Spontaneous
  Country: US (occurrence: US)
  Receive Date: 20190815
  Receipt Date: 20190815
  Transmission Date: 20200122
  Serious: No
  Sender: FDA-Public Use
  Company Number: None

PATIENT
  Age: 57 Year
  Sex: Female
  Weight: 60.4 kg

DRUGS (4)
  1. DULOXETINE 30MG PO DAILY [Concomitant]
  2. DILTIAZEM 24HR ER 180 MG CAP [Suspect]
     Active Substance: DILTIAZEM
     Indication: HYPERTENSION
     Route: 048
  3. PANTOPRAZOLE 40MG PO DAILY [Concomitant]
  4. ERGOCALCIFEROL 50000 INTL UNITS PO WEEKLY [Concomitant]

REACTIONS (2)
  - Hypersensitivity [None]
  - Rash maculo-papular [None]

NARRATIVE: CASE EVENT DATE: 20190728
